FAERS Safety Report 15711027 (Version 2)
Quarter: 2018Q4

REPORT INFORMATION
  Report Type: Spontaneous
  Country: KZ (occurrence: KZ)
  Receive Date: 20181211
  Receipt Date: 20181212
  Transmission Date: 20190205
  Serious: Yes (Hospitalization, Other)
  Sender: FDA-Public Use
  Company Number: PHHY2018KZ171081

PATIENT
  Age: 8 Month
  Sex: Male

DRUGS (1)
  1. OSPAMOX [Suspect]
     Active Substance: AMOXICILLIN
     Indication: UPPER RESPIRATORY TRACT INFECTION
     Dosage: 255 MG/ML (250 MG/5 ML), UNK
     Route: 048
     Dates: start: 20181105

REACTIONS (4)
  - Diarrhoea [Recovering/Resolving]
  - Cough [Recovering/Resolving]
  - Body temperature increased [Recovering/Resolving]
  - Erythema multiforme [Recovering/Resolving]

NARRATIVE: CASE EVENT DATE: 20181106
